FAERS Safety Report 19189330 (Version 1)
Quarter: 2021Q2

REPORT INFORMATION
  Report Type: Spontaneous
  Country: US (occurrence: US)
  Receive Date: 20210428
  Receipt Date: 20210428
  Transmission Date: 20210717
  Serious: Yes (Hospitalization)
  Sender: FDA-Public Use
  Company Number: None

PATIENT
  Age: 82 Year
  Sex: Male
  Weight: 74 kg

DRUGS (3)
  1. CEFPOXIDIME [Concomitant]
     Dates: start: 20210414, end: 20210419
  2. WARFARIN [Suspect]
     Active Substance: WARFARIN
     Indication: ATRIAL FIBRILLATION
     Dosage: ?          OTHER FREQUENCY:WEEKLY;?
     Route: 048
     Dates: start: 20180401
  3. AMIODARONE [Concomitant]
     Active Substance: AMIODARONE
     Dates: start: 20180101

REACTIONS (3)
  - Anaemia [None]
  - Pneumonia [None]
  - Abdominal wall haematoma [None]

NARRATIVE: CASE EVENT DATE: 20210409
